FAERS Safety Report 6397323-6 (Version None)
Quarter: 2009Q4

REPORT INFORMATION
  Report Type: 
  Country: None (occurrence: None)
  Receive Date: 20091012
  Receipt Date: 20091007
  Transmission Date: 20100525
  Serious: Yes (Other)
  Sender: FDA-Public Use
  Company Number: US-RB-021286-09

PATIENT
  Sex: Female

DRUGS (5)
  1. SUBUTEX [Suspect]
     Route: 060
     Dates: start: 20090928
  2. SUBOXONE [Suspect]
     Route: 060
     Dates: start: 20090825, end: 20090927
  3. SUBOXONE [Suspect]
     Route: 060
     Dates: start: 20090326, end: 20090824
  4. XANAX [Suspect]
     Indication: ANXIETY
     Dosage: FREQUENCY UNKNOWN
     Route: 065
     Dates: end: 20090901
  5. LUNESTA [Concomitant]
     Indication: INSOMNIA
     Dosage: 2 MG @ BEDTIME
     Route: 065

REACTIONS (2)
  - CONVULSION [None]
  - DRUG EXPOSURE DURING PREGNANCY [None]
